FAERS Safety Report 7052579-1 (Version None)
Quarter: 2010Q4

REPORT INFORMATION
  Report Type: 
  Country: None (occurrence: None)
  Receive Date: 20101019
  Receipt Date: 20100809
  Transmission Date: 20110411
  Serious: No
  Sender: FDA-Public Use
  Company Number: US-MYLANLABS-2010S1014595

PATIENT
  Age: 68 Year
  Sex: Female

DRUGS (1)
  1. FELODIPINE [Suspect]
     Indication: BLOOD PRESSURE INCREASED
     Route: 048
     Dates: start: 20100801, end: 20100809

REACTIONS (3)
  - HEADACHE [None]
  - TENSION HEADACHE [None]
  - TREMOR [None]
